FAERS Safety Report 16999945 (Version 5)
Quarter: 2020Q3

REPORT INFORMATION
  Report Type: Report from Study
  Country: JP (occurrence: JP)
  Receive Date: 20191106
  Receipt Date: 20200817
  Transmission Date: 20201102
  Serious: Yes (Death, Other)
  Sender: FDA-Public Use
  Company Number: JP-KYOWAKIRIN-2019AKK017458

PATIENT

DRUGS (4)
  1. METHYLPREDNISOLONE. [Concomitant]
     Active Substance: METHYLPREDNISOLONE
     Dosage: 60 MG, GRADUALLY DECREASED
     Route: 041
  2. PROGRAF [Concomitant]
     Active Substance: TACROLIMUS
     Indication: GRAFT VERSUS HOST DISEASE
     Dosage: 0.8 MG, 24H SUSTAINED
     Route: 042
     Dates: start: 20150424
  3. POTELIGEO [Suspect]
     Active Substance: MOGAMULIZUMAB-KPKC
     Indication: ADULT T-CELL LYMPHOMA/LEUKAEMIA
     Dosage: 50 MG, 8 TIMES
     Route: 041
     Dates: start: 20140910, end: 20141222
  4. METHYLPREDNISOLONE. [Concomitant]
     Active Substance: METHYLPREDNISOLONE
     Indication: GRAFT VERSUS HOST DISEASE
     Dosage: 500 MG, QD
     Route: 041
     Dates: start: 20150424, end: 20150426

REACTIONS (5)
  - Cytomegalovirus enteritis [Recovered/Resolved]
  - Graft versus host disease [Fatal]
  - Cytomegalovirus viraemia [Fatal]
  - Cytomegalovirus enterocolitis [Fatal]
  - Pneumonia [Fatal]

NARRATIVE: CASE EVENT DATE: 20150424
